FAERS Safety Report 17528341 (Version 1)
Quarter: 2020Q1

REPORT INFORMATION
  Report Type: Spontaneous
  Country: GB (occurrence: GB)
  Receive Date: 20200311
  Receipt Date: 20200311
  Transmission Date: 20200409
  Serious: Yes (Other)
  Sender: FDA-Public Use
  Company Number: GB-JNJFOC-20200305846

PATIENT
  Age: 26 Year
  Sex: Male

DRUGS (1)
  1. SIMPONI [Suspect]
     Active Substance: GOLIMUMAB
     Indication: RHEUMATOID ARTHRITIS
     Dosage: 50 MG/0.5 ML
     Route: 058

REACTIONS (3)
  - Product dose omission [Unknown]
  - Joint swelling [Unknown]
  - Seizure [Unknown]

NARRATIVE: CASE EVENT DATE: 202002
